FAERS Safety Report 16049484 (Version 2)
Quarter: 2019Q2

REPORT INFORMATION
  Report Type: Spontaneous
  Country: BD (occurrence: BD)
  Receive Date: 20190307
  Receipt Date: 20190502
  Transmission Date: 20190711
  Serious: Yes (Other)
  Sender: FDA-Public Use
  Company Number: BD-JUBILANT PHARMA LTD-2019BD000234

PATIENT
  Age: 65 Year
  Sex: Female

DRUGS (1)
  1. TETRAKIS (2-METHOXYISOBUTYL ISONITRILE) COPPER (I) TETRAFLUOROBORATE [Suspect]
     Active Substance: TETRAKIS(2-METHOXYISOBUTYLISOCYANIDE)COPPER(I) TETRAFLUOROBORATE
     Indication: SCAN PARATHYROID
     Dosage: UNK

REACTIONS (3)
  - Peripheral ischaemia [Recovered/Resolved]
  - Embolism [Recovered/Resolved]
  - Scan parathyroid [Not Recovered/Not Resolved]
